FAERS Safety Report 20393421 (Version 2)
Quarter: 2022Q1

REPORT INFORMATION
  Report Type: Report from Study
  Country: US (occurrence: US)
  Receive Date: 20220128
  Receipt Date: 20220228
  Transmission Date: 20220423
  Serious: Yes (Hospitalization)
  Sender: FDA-Public Use
  Company Number: US-GILEAD-2022-0567153

PATIENT
  Age: 66 Year
  Sex: Female

DRUGS (1)
  1. AMBRISENTAN [Suspect]
     Active Substance: AMBRISENTAN
     Indication: Pulmonary hypertension
     Dosage: 10 MG, QD
     Route: 065
     Dates: start: 201702

REACTIONS (4)
  - Fluid retention [Unknown]
  - COVID-19 [Unknown]
  - Dyspnoea [Unknown]
  - Product dose omission issue [Not Recovered/Not Resolved]
